FAERS Safety Report 14940103 (Version 2)
Quarter: 2018Q2

REPORT INFORMATION
  Report Type: Spontaneous
  Country: US (occurrence: US)
  Receive Date: 20180525
  Receipt Date: 20180529
  Transmission Date: 20180711
  Serious: Yes (Other)
  Sender: FDA-Public Use
  Company Number: US-PFIZER INC-2018212798

PATIENT
  Sex: Female

DRUGS (2)
  1. ALDACTONE [Suspect]
     Active Substance: SPIRONOLACTONE
     Dosage: UNK
  2. KCL [Suspect]
     Active Substance: POTASSIUM CHLORIDE
     Dosage: 12000 MG, DAILY

REACTIONS (2)
  - Blood potassium decreased [Unknown]
  - Contraindicated product administered [Unknown]
